FAERS Safety Report 13009329 (Version 3)
Quarter: 2017Q2

REPORT INFORMATION
  Report Type: Spontaneous
  Country: CA (occurrence: CA)
  Receive Date: 20161208
  Receipt Date: 20170502
  Transmission Date: 20170830
  Serious: Yes (Other)
  Sender: FDA-Public Use
  Company Number: CA-VERTEX PHARMACEUTICALS-2016-006756

PATIENT
  Age: 38 Year
  Sex: Female
  Weight: 48 kg

DRUGS (29)
  1. FOLIC ACID. [Concomitant]
     Active Substance: FOLIC ACID
     Dosage: 5 MG, ONCE DAILY
     Route: 048
  2. COLYTE [Concomitant]
     Active Substance: POLYETHYLENE GLYCOL 3350\POTASSIUM CHLORIDE\SODIUM BICARBONATE\SODIUM CHLORIDE\SODIUM SULFATE ANHYDROUS
     Dosage: 1- 2 CUPS QH5 PRN
     Route: 048
  3. PANCREATIN [Concomitant]
     Active Substance: PANCRELIPASE
  4. FERROUS GLUCONATE [Concomitant]
     Active Substance: FERROUS GLUCONATE
  5. TRAZODONE [Concomitant]
     Active Substance: TRAZODONE HYDROCHLORIDE
  6. RAMIPRIL. [Concomitant]
     Active Substance: RAMIPRIL
  7. FORMOTEROL FUMARATE [Concomitant]
     Active Substance: FORMOTEROL FUMARATE
     Route: 055
  8. MIDAZOLAM [Concomitant]
     Active Substance: MIDAZOLAM HYDROCHLORIDE
  9. ACETAMINOPHEN W/OXYCODONE/OXYCODONE TEREPHTHALATE [Concomitant]
  10. MACROGOL W/POTASSIUM CHLORIDE/SODIU [Concomitant]
     Route: 048
  11. OXYCODONE [Concomitant]
     Active Substance: OXYCODONE
     Dosage: 5MG, 1.2 X DAILY PRN
  12. CALCIUM CARBONATE W/MAGNESIUM CARBO [Concomitant]
  13. NACL [Concomitant]
     Active Substance: SODIUM CHLORIDE
     Dosage: 4 ML, BID
     Route: 055
  14. AZITHROMYCIN ANHYDROUS. [Concomitant]
     Active Substance: AZITHROMYCIN ANHYDROUS
     Dosage: 500 MG DAILY ON MON, WED, FRI
     Route: 048
  15. OXEZE [Concomitant]
     Dosage: 2 PUFFS, BID
     Route: 055
  16. TUMS [Concomitant]
     Active Substance: CALCIUM CARBONATE
  17. CAYSTON [Concomitant]
     Active Substance: AZTREONAM
     Dosage: 75 MG TID X 14 DAYS ON/OFF
     Route: 055
  18. RESOTRAN [Concomitant]
     Active Substance: PRUCALOPRIDE SUCCINATE
     Dosage: 1 MG QAM
     Route: 048
  19. PRUCALOPRIDE SUCCINATE [Concomitant]
     Active Substance: PRUCALOPRIDE SUCCINATE
     Route: 048
  20. DEXPANTHENOL W/ERGOCALCIFEROL/NICOTINAMIDE/PY [Concomitant]
  21. ORKAMBI [Suspect]
     Active Substance: IVACAFTOR\LUMACAFTOR
     Indication: CYSTIC FIBROSIS
     Dosage: 200/125 MG, BID
     Route: 048
     Dates: start: 20161110, end: 20161111
  22. CREON [Concomitant]
     Active Substance: PANCRELIPASE AMYLASE\PANCRELIPASE LIPASE\PANCRELIPASE PROTEASE
     Dosage: 4-5/MEALS AND 3/SNACKS
     Route: 048
  23. VENTOLIN [Concomitant]
     Active Substance: ALBUTEROL SULFATE
     Dosage: 2.5 MG, BID
     Route: 055
  24. WELLBUTRIN [Concomitant]
     Active Substance: BUPROPION HYDROCHLORIDE
  25. TRANEXAMIC ACID. [Concomitant]
     Active Substance: TRANEXAMIC ACID
  26. TRANEXAMIC ACID GEL [Concomitant]
  27. TARGIN [Concomitant]
     Active Substance: NALOXONE HYDROCHLORIDE\OXYCODONE HYDROCHLORIDE
  28. PERCOCET [Concomitant]
     Active Substance: ACETAMINOPHEN\OXYCODONE HYDROCHLORIDE
     Dosage: 1 TAB DAILY ONCE DAILY PRN
  29. VITAMIN K [Concomitant]
     Active Substance: PHYTONADIONE
     Dosage: 5MG DAILY

REACTIONS (3)
  - Epistaxis [Unknown]
  - Dyspnoea [Recovered/Resolved]
  - Platelet count decreased [Recovered/Resolved]

NARRATIVE: CASE EVENT DATE: 201611
